FAERS Safety Report 9587487 (Version 2)
Quarter: 2013Q4

REPORT INFORMATION
  Report Type: Spontaneous
  Country: US (occurrence: US)
  Receive Date: 20131003
  Receipt Date: 20131022
  Transmission Date: 20140711
  Serious: No
  Sender: FDA-Public Use
  Company Number: US-009507513-1310USA000601

PATIENT
  Age: 63 Year
  Sex: Male
  Weight: 96.6 kg

DRUGS (1)
  1. DULERA [Suspect]
     Indication: ASTHMA
     Dosage: 20 , BID
     Route: 055
     Dates: start: 20130429, end: 201309

REACTIONS (1)
  - Vision blurred [Recovered/Resolved]
